FAERS Safety Report 6332213-6 (Version None)
Quarter: 2009Q3

REPORT INFORMATION
  Report Type: 
  Country: None (occurrence: None)
  Receive Date: 20090828
  Receipt Date: 20090817
  Transmission Date: 20100115
  Serious: Yes (Death)
  Sender: FDA-Public Use
  Company Number: GB-PFIZER INC-2009256054

PATIENT
  Age: 47 Year

DRUGS (1)
  1. GENOTROPIN [Suspect]

REACTIONS (1)
  - DEATH [None]
